FAERS Safety Report 11180105 (Version 1)
Quarter: 2015Q2

REPORT INFORMATION
  Report Type: Spontaneous
  Country: US (occurrence: None)
  Receive Date: 20150610
  Receipt Date: 20150610
  Transmission Date: 20150821
  Serious: No
  Sender: FDA-Public Use
  Company Number: None

PATIENT
  Age: 64 Year
  Sex: Female

DRUGS (1)
  1. JAKAFI [Suspect]
     Active Substance: RUXOLITINIB
     Indication: ILL-DEFINED DISORDER
     Route: 048
     Dates: start: 20150604

REACTIONS (3)
  - Incorrect dose administered [None]
  - Physical product label issue [None]
  - Underdose [None]

NARRATIVE: CASE EVENT DATE: 20140604
